FAERS Safety Report 11538983 (Version 3)
Quarter: 2015Q4

REPORT INFORMATION
  Report Type: Spontaneous
  Country: US (occurrence: US)
  Receive Date: 20150923
  Receipt Date: 20151103
  Transmission Date: 20160304
  Serious: No
  Sender: FDA-Public Use
  Company Number: US-009507513-1509USA008006

PATIENT

DRUGS (1)
  1. STERILE DILUENT [Suspect]
     Active Substance: WATER

REACTIONS (2)
  - Incorrect product storage [Unknown]
  - No adverse event [Unknown]
